FAERS Safety Report 18414147 (Version 1)
Quarter: 2020Q4

REPORT INFORMATION
  Report Type: Spontaneous
  Country: GB (occurrence: GB)
  Receive Date: 20201022
  Receipt Date: 20201022
  Transmission Date: 20210114
  Serious: Yes (Other)
  Sender: FDA-Public Use
  Company Number: GB-APOTEX-2020AP020375

PATIENT
  Sex: Male

DRUGS (3)
  1. SEROXAT [Suspect]
     Active Substance: PAROXETINE HYDROCHLORIDE
     Indication: ANXIETY
     Dosage: 20 MILLIGRAM
     Route: 065
  2. SEROXAT [Suspect]
     Active Substance: PAROXETINE HYDROCHLORIDE
     Indication: PRODUCT USED FOR UNKNOWN INDICATION
     Dosage: UNK
     Route: 065
  3. SEROXAT [Suspect]
     Active Substance: PAROXETINE HYDROCHLORIDE
     Indication: DEPRESSION

REACTIONS (13)
  - Head discomfort [Unknown]
  - Suicidal ideation [Unknown]
  - Product dose omission issue [Unknown]
  - Malaise [Unknown]
  - Paraesthesia [Unknown]
  - Mood altered [Unknown]
  - Hypoaesthesia [Unknown]
  - Drug dependence [Unknown]
  - Anger [Unknown]
  - Adverse drug reaction [Unknown]
  - Treatment noncompliance [Unknown]
  - Nausea [Unknown]
  - Withdrawal syndrome [Unknown]
